FAERS Safety Report 4832871-9 (Version None)
Quarter: 2005Q4

REPORT INFORMATION
  Report Type: 
  Country: None (occurrence: None)
  Receive Date: 20051121
  Receipt Date: 20051110
  Transmission Date: 20060501
  Serious: Yes (Life-Threatening)
  Sender: FDA-Public Use
  Company Number: BR-GLAXOSMITHKLINE-A0582800A

PATIENT
  Sex: Female

DRUGS (5)
  1. LAMICTAL [Suspect]
     Indication: SUICIDE ATTEMPT
     Dosage: 300MG SINGLE DOSE
     Route: 048
  2. CLONAZEPAM [Suspect]
     Indication: SUICIDE ATTEMPT
     Route: 048
  3. FENOTEROL [Suspect]
     Indication: SUICIDE ATTEMPT
     Route: 048
  4. CARBAMAZEPINE [Suspect]
     Indication: SUICIDE ATTEMPT
     Dosage: 6TAB SINGLE DOSE
     Route: 048
  5. SEROQUEL [Suspect]
     Indication: SUICIDE ATTEMPT
     Route: 048

REACTIONS (3)
  - CONFUSIONAL STATE [None]
  - SOMNOLENCE [None]
  - SUICIDE ATTEMPT [None]
